FAERS Safety Report 8049875-8 (Version None)
Quarter: 2012Q1

REPORT INFORMATION
  Report Type: 
  Country: None (occurrence: None)
  Receive Date: 20120112
  Receipt Date: 20110809
  Transmission Date: 20120608
  Serious: No
  Sender: FDA-Public Use
  Company Number: 2011-06620

PATIENT
  Sex: Male

DRUGS (1)
  1. TUBERSOL [Suspect]
     Indication: TUBERCULIN TEST
     Dates: start: 20110808, end: 20110808

REACTIONS (3)
  - PAIN [None]
  - PYREXIA [None]
  - CHILLS [None]
